FAERS Safety Report 11931462 (Version 1)
Quarter: 2016Q1

REPORT INFORMATION
  Report Type: Spontaneous
  Country: CH (occurrence: CH)
  Receive Date: 20160120
  Receipt Date: 20160120
  Transmission Date: 20160526
  Serious: Yes (Other)
  Sender: FDA-Public Use
  Company Number: CH-ASTRAZENECA-2016SE03115

PATIENT
  Age: 13644 Day
  Sex: Female
  Weight: 60 kg

DRUGS (4)
  1. ESCITALOPRAM [Suspect]
     Active Substance: ESCITALOPRAM OXALATE
     Indication: DEPRESSION
     Route: 048
     Dates: start: 20140827
  2. LYRICA [Suspect]
     Active Substance: PREGABALIN
     Dosage: 50 MG
     Route: 048
     Dates: start: 20100225
  3. SEQUASE [Suspect]
     Active Substance: QUETIAPINE FUMARATE
     Indication: MANIA
     Dosage: 0-1-0-2 TABLETS, I.E. 200 MG AT MIDDAY AND 400 MG BEFORE GOING TO SLEEP
     Route: 048
     Dates: start: 20080314
  4. INDERAL [Suspect]
     Active Substance: PROPRANOLOL HYDROCHLORIDE
     Indication: TACHYCARDIA
     Dosage: 1-1-0-0, I.E. 10 MG IN THE MORNING AND 10 MG AT MIDDAY WITH NOTHING ELSE AFTER THAT
     Route: 048
     Dates: start: 20140322

REACTIONS (2)
  - Anterograde amnesia [Recovered/Resolved]
  - Vomiting [Recovered/Resolved]

NARRATIVE: CASE EVENT DATE: 20150801
